FAERS Safety Report 23307814 (Version 2)
Quarter: 2024Q2

REPORT INFORMATION
  Report Type: Spontaneous
  Country: US (occurrence: US)
  Receive Date: 20231218
  Receipt Date: 20240409
  Transmission Date: 20240716
  Serious: No
  Sender: FDA-Public Use
  Company Number: US-Calliditas-2023CAL01633

PATIENT
  Age: 23 Year
  Sex: Male
  Weight: 57.15 kg

DRUGS (1)
  1. TARPEYO [Suspect]
     Active Substance: BUDESONIDE
     Indication: IgA nephropathy
     Dosage: 16MG (4MG CAPSULES) ONCE DAILY
     Route: 048
     Dates: start: 20231116

REACTIONS (4)
  - Urine abnormality [Unknown]
  - Weight decreased [Unknown]
  - Faeces soft [Unknown]
  - Dysuria [Unknown]
